FAERS Safety Report 5366079-8 (Version None)
Quarter: 2007Q2

REPORT INFORMATION
  Report Type: 
  Country: None (occurrence: None)
  Receive Date: 20070611
  Receipt Date: 20061027
  Transmission Date: 20071010
  Serious: Yes (Hospitalization, Other)
  Sender: FDA-Public Use
  Company Number: USA-2004-0013097

PATIENT
  Age: 42 Year
  Sex: Female
  Weight: 72.6 kg

DRUGS (11)
  1. OXYCONTIN [Suspect]
     Indication: PAIN
     Dosage: 40 MG, BID, ORAL
     Route: 048
     Dates: start: 20000810, end: 20030601
  2. OXYIR [Concomitant]
  3. BEXTRA [Concomitant]
  4. AMBIEN [Concomitant]
  5. PROZAC [Concomitant]
  6. ZANAFLEX [Concomitant]
  7. CELEBREX [Concomitant]
  8. SONATA [Concomitant]
  9. DETROL LA [Concomitant]
  10. IBUPROFEN [Concomitant]
  11. LEVAQUIN [Concomitant]

REACTIONS (35)
  - ABDOMINAL DISCOMFORT [None]
  - ABDOMINAL DISTENSION [None]
  - ABDOMINAL TENDERNESS [None]
  - ANXIETY [None]
  - AREFLEXIA [None]
  - ASTHENIA [None]
  - CLUSTER HEADACHE [None]
  - CONSTIPATION [None]
  - COUGH [None]
  - DECREASED APPETITE [None]
  - DRUG ABUSER [None]
  - DRUG DEPENDENCE [None]
  - DRUG TOLERANCE INCREASED [None]
  - DRUG WITHDRAWAL SYNDROME [None]
  - FAECALOMA [None]
  - HYPOAESTHESIA [None]
  - HYPOREFLEXIA [None]
  - INADEQUATE ANALGESIA [None]
  - INFLAMMATION [None]
  - INSOMNIA [None]
  - LIBIDO DECREASED [None]
  - MALAISE [None]
  - NAUSEA [None]
  - NERVOUSNESS [None]
  - PAIN [None]
  - PAIN IN EXTREMITY [None]
  - PHARYNGITIS [None]
  - POLLAKIURIA [None]
  - RASH [None]
  - RESIDUAL URINE [None]
  - SWELLING [None]
  - UPPER RESPIRATORY TRACT INFECTION [None]
  - URINARY HESITATION [None]
  - URINE FLOW DECREASED [None]
  - VOMITING [None]
